FAERS Safety Report 4763736-9 (Version None)
Quarter: 2005Q3

REPORT INFORMATION
  Report Type: 
  Country: None (occurrence: None)
  Receive Date: 20050908
  Receipt Date: 20050901
  Transmission Date: 20060218
  Serious: Yes (Other)
  Sender: FDA-Public Use
  Company Number: PHEH2005US09835

PATIENT
  Sex: Male

DRUGS (2)
  1. TRILEPTAL [Suspect]
     Dosage: 300 MG, QD
  2. FOCALIN [Concomitant]
     Dosage: 5 MG, BID

REACTIONS (2)
  - CHEST PAIN [None]
  - DIPLEGIA [None]
